FAERS Safety Report 6854255-4 (Version None)
Quarter: 2010Q3

REPORT INFORMATION
  Report Type: 
  Country: None (occurrence: None)
  Receive Date: 20100717
  Receipt Date: 20080102
  Transmission Date: 20110219
  Serious: No
  Sender: FDA-Public Use
  Company Number: US-PFIZER INC-2008001282

PATIENT
  Sex: Male
  Weight: 113.63 kg

DRUGS (10)
  1. CHANTIX [Suspect]
     Indication: SMOKING CESSATION THERAPY
     Dates: start: 20080102
  2. MS CONTIN [Concomitant]
  3. OXYCODONE HCL [Concomitant]
  4. DIAZEPAM [Concomitant]
  5. CYMBALTA [Concomitant]
  6. SENNA [Concomitant]
  7. OMEPRAZOLE [Concomitant]
  8. PROMETHAZINE [Concomitant]
  9. LISINOPRIL [Concomitant]
  10. HYDROCHLOROTHIAZIDE [Concomitant]

REACTIONS (2)
  - NAUSEA [None]
  - WRONG TECHNIQUE IN DRUG USAGE PROCESS [None]
